FAERS Safety Report 4518245-9 (Version None)
Quarter: 2004Q4

REPORT INFORMATION
  Report Type: 
  Country: None (occurrence: None)
  Receive Date: 20041130
  Receipt Date: 20041115
  Transmission Date: 20050328
  Serious: Yes (Death, Other)
  Sender: FDA-Public Use
  Company Number: US-2004-035166

PATIENT
  Age: 64 Year
  Sex: Male
  Weight: 91 kg

DRUGS (18)
  1. REFLUDAN [Suspect]
     Indication: THROMBOCYTOPENIA
     Dosage: INTRAVENOUS
     Route: 042
     Dates: start: 20040412
  2. XIGRIS [Suspect]
     Indication: SEPSIS
     Dosage: INTRAVENOUS
     Route: 042
     Dates: start: 20040407
  3. ERYTHROPOIETIN  (PROCRIT) VS PLACEBO (ERYTHROPOIETIN) [Suspect]
     Indication: ANAEMIA
     Dosage: 40000 IU VERSUS PLACEBO, SUBCUTANEOUS
     Route: 058
     Dates: start: 20040409, end: 20040423
  4. HEPARIN [Suspect]
     Indication: DEEP VEIN THROMBOSIS
     Dosage: INTRAVENOUS
     Route: 042
     Dates: start: 20040414
  5. SOLU-CORTEF [Suspect]
     Indication: SEPSIS
     Dosage: INTRAVENOUS
     Route: 042
     Dates: start: 20040414
  6. LEVOPHED [Concomitant]
  7. VASOPRESSIN INJECTION (VASOPRESSIN INJECTION) [Concomitant]
  8. FENTANYL [Concomitant]
  9. NOREPINEPHRINE BITARTRATE (NOREPINEPHRINE BITARTRATE) [Concomitant]
  10. AMIODARONE (AMIODARONE) [Concomitant]
  11. POTASSIUM CHLORIDE [Concomitant]
  12. FUROSEMIDE [Concomitant]
  13. PARACETAMOL [Concomitant]
  14. UNACID (AMPICILLIN SODIUM, SULBACTAM SODIUM) [Concomitant]
  15. CEFTAZIDIME SODIUM [Concomitant]
  16. FERROUS SULFATE TAB [Concomitant]
  17. PANTOPRAZOLE (PANTOPRAZOLE) [Concomitant]
  18. VANCOMYCIN [Concomitant]

REACTIONS (8)
  - ATRIAL FIBRILLATION [None]
  - ATRIAL FLUTTER [None]
  - HAEMATOCRIT DECREASED [None]
  - HEPATIC HAEMATOMA [None]
  - RESPIRATORY FAILURE [None]
  - SEPSIS [None]
  - THROMBOCYTOPENIA [None]
  - WOUND EVISCERATION [None]
